FAERS Safety Report 6804642-5 (Version None)
Quarter: 2010Q2

REPORT INFORMATION
  Report Type: 
  Country: None (occurrence: None)
  Receive Date: 20100628
  Receipt Date: 20070430
  Transmission Date: 20101027
  Serious: No
  Sender: FDA-Public Use
  Company Number: US-PFIZER INC-2007033776

PATIENT
  Sex: Male
  Weight: 75 kg

DRUGS (1)
  1. XALATAN [Suspect]
     Indication: INTRAOCULAR PRESSURE INCREASED
     Dates: start: 20040101

REACTIONS (2)
  - EYE IRRITATION [None]
  - INTRAOCULAR PRESSURE INCREASED [None]
